FAERS Safety Report 8869632 (Version 1)
Quarter: 2012Q4

REPORT INFORMATION
  Report Type: 
  Country: US (occurrence: US)
  Receive Date: 20121026
  Receipt Date: 20121026
  Transmission Date: 20130627
  Serious: No
  Sender: FDA-Public Use
  Company Number: US-AMGEN-USASP2012043228

PATIENT
  Age: 49 Year
  Sex: Male
  Weight: 58.96 kg

DRUGS (7)
  1. ENBREL [Suspect]
     Indication: PRODUCT USED FOR UNKNOWN INDICATION
     Dosage: 50 mg, qwk
     Route: 058
  2. NEXIUM                             /01479302/ [Concomitant]
     Dosage: 40 mg, UNK
  3. METHOTREXATE [Concomitant]
     Dosage: 50 UNK, UNK (50 mg/2ml)
  4. MULTIVITAMIN                       /00097801/ [Concomitant]
     Dosage: UNK
  5. TYLENOL /00020001/ [Concomitant]
     Dosage: 650 mg, UNK (8 HR Tab 650 mg)
  6. REMERON RD [Concomitant]
     Dosage: 30 mg, UNK
  7. CALCIUM [Concomitant]
     Dosage: 500 UNK, UNK

REACTIONS (1)
  - Pneumonia [Unknown]
